FAERS Safety Report 15574312 (Version 2)
Quarter: 2021Q4

REPORT INFORMATION
  Report Type: Spontaneous
  Country: US (occurrence: US)
  Receive Date: 20181101
  Receipt Date: 20211221
  Transmission Date: 20220304
  Serious: No
  Sender: FDA-Public Use
  Company Number: US-SA-2018SA300182

PATIENT
  Age: 59 Year
  Sex: Female

DRUGS (2)
  1. KEVZARA [Suspect]
     Active Substance: SARILUMAB
     Indication: Rheumatoid arthritis
     Dosage: 200 MG, QOW
     Route: 058
     Dates: start: 201808
  2. KEVZARA [Suspect]
     Active Substance: SARILUMAB
     Dosage: 200 UNK; FREQUENCY: OTHER
     Dates: start: 202102

REACTIONS (1)
  - Injection site urticaria [Recovered/Resolved]

NARRATIVE: CASE EVENT DATE: 20180101
